FAERS Safety Report 9190199 (Version 1)
Quarter: 2013Q1

REPORT INFORMATION
  Report Type: Spontaneous
  Country: US (occurrence: None)
  Receive Date: 20130325
  Receipt Date: 20130325
  Transmission Date: 20140127
  Serious: No
  Sender: FDA-Public Use
  Company Number: None

PATIENT
  Age: 51 Year
  Sex: Male
  Weight: 65.77 kg

DRUGS (2)
  1. CIPRO [Suspect]
     Indication: PROSTATITIS
     Dosage: 1 TAB EVERY 12 HOURS?
  2. BACTRIM [Suspect]
     Indication: PROSTATITIS
     Dosage: 1 TAB EVERY 12HOURS X 7 DAYS.

REACTIONS (8)
  - Depression [None]
  - Anxiety [None]
  - Palpitations [None]
  - Insomnia [None]
  - Mood swings [None]
  - Paranoia [None]
  - Confusional state [None]
  - Dehydration [None]
